FAERS Safety Report 9222395 (Version 1)
Quarter: 2013Q2

REPORT INFORMATION
  Report Type: Spontaneous
  Country: TR (occurrence: TR)
  Receive Date: 20130410
  Receipt Date: 20130410
  Transmission Date: 20140414
  Serious: Yes (Hospitalization, Disabling, Other)
  Sender: FDA-Public Use
  Company Number: TR-AMGEN-TURSP2013024565

PATIENT
  Age: 48 Year
  Sex: Female
  Weight: 94 kg

DRUGS (4)
  1. ENBREL [Suspect]
     Indication: RHEUMATOID ARTHRITIS
     Dosage: 50 MG, WEEKLY
     Route: 058
     Dates: start: 20130131, end: 20130221
  2. ZEFFIX [Concomitant]
     Dosage: 1 DF, 1X/DAY
     Route: 048
     Dates: start: 2008
  3. IMURAN                             /00001501/ [Concomitant]
     Dosage: 1 DF, 1X/DAY
     Route: 048
     Dates: start: 201206
  4. DELTACORTRIL                       /00016201/ [Concomitant]
     Dosage: 5 MG, 2X/DAY
     Route: 048

REACTIONS (5)
  - Gait disturbance [Unknown]
  - Pain [Recovered/Resolved]
  - Blood test abnormal [Recovered/Resolved]
  - Red blood cell sedimentation rate increased [Recovered/Resolved]
  - Drug ineffective [Recovered/Resolved]
